FAERS Safety Report 9106341 (Version 2)
Quarter: 2013Q3

REPORT INFORMATION
  Report Type: Spontaneous
  Country: CA (occurrence: CA)
  Receive Date: 20130220
  Receipt Date: 20130724
  Transmission Date: 20140515
  Serious: Yes (Other)
  Sender: FDA-Public Use
  Company Number: CA-AMGEN-CANSP2013011705

PATIENT
  Age: 55 Year
  Sex: Female

DRUGS (8)
  1. ENBREL [Suspect]
     Indication: RHEUMATOID ARTHRITIS
     Dosage: 50 MG/ML, UNK
     Route: 065
     Dates: start: 20111205
  2. ENBREL [Suspect]
     Dosage: UNK
  3. METHOTREXATE [Concomitant]
     Dosage: UNK
  4. LOSEC                              /00661201/ [Concomitant]
     Dosage: UNK
  5. FOLIC ACID [Concomitant]
     Dosage: UNK UNK, 3 TIMES/WK
  6. IBUPROFEN [Concomitant]
     Dosage: 1200 MG AM AND PM, UNK
  7. TYLENOL                            /00020001/ [Concomitant]
     Dosage: WHEN NECESSARY
  8. VIT D [Concomitant]
     Dosage: 2000 UNIT, QD

REACTIONS (1)
  - Cystitis [Unknown]
